FAERS Safety Report 15279756 (Version 2)
Quarter: 2018Q3

REPORT INFORMATION
  Report Type: Report from Study
  Country: None (occurrence: ES)
  Receive Date: 20180815
  Receipt Date: 20180827
  Transmission Date: 20181010
  Serious: Yes (Other)
  Sender: FDA-Public Use
  Company Number: ES-ABBVIE-18K-144-2311492-00

PATIENT
  Age: 75 Year
  Sex: Female
  Weight: 55 kg

DRUGS (7)
  1. DUODOPA [Suspect]
     Active Substance: CARBIDOPA\LEVODOPA
     Dosage: DOSE INCREASED?MD 13 ML, CD 2.4 ML, ED 3 ML; LATER CD 3.5 ML, ED 3 ML
     Route: 050
     Dates: start: 2018
  2. PRAMIPEXOL [Concomitant]
     Active Substance: PRAMIPEXOLE
     Indication: PRODUCT USED FOR UNKNOWN INDICATION
     Dates: end: 201805
  3. DUODOPA [Suspect]
     Active Substance: CARBIDOPA\LEVODOPA
     Dosage: DOSE INCREASED?MORNING DOSE 13 ML, ?CONTINUOUS DOSE 2.1 ML; ?EXTRA DOSE 2.5 ML
     Route: 050
     Dates: start: 2018, end: 2018
  4. DUODOPA [Suspect]
     Active Substance: CARBIDOPA\LEVODOPA
     Dosage: MORNING PUMP : MD: 14.5 ML, CD: 2.6 ML, ED: 3.5 ML.?AFTERNOON PUMP: CD 2.7 ML, ED 3.5 ML.
     Route: 050
  5. DUODOPA [Suspect]
     Active Substance: CARBIDOPA\LEVODOPA
     Dosage: DOSE INCREASED?MORNING DOSE: 11.5ML/H?CONTINUOUS DOSE: 2ML/H ?EXTRA DOSE: 2.5ML/H
     Route: 050
     Dates: start: 2018, end: 2018
  6. DUODOPA [Suspect]
     Active Substance: CARBIDOPA\LEVODOPA
     Indication: PARKINSON^S DISEASE
     Route: 050
     Dates: start: 20180222, end: 2018
  7. DUODOPA [Suspect]
     Active Substance: CARBIDOPA\LEVODOPA
     Dosage: CD: 3 ML (MORNING PERFUSION) CD: 3.2 ML (AFTERNOON PERFUSION)
     Route: 050

REACTIONS (12)
  - Dyskinesia [Recovered/Resolved]
  - Hip fracture [Recovered/Resolved]
  - Anal incontinence [Not Recovered/Not Resolved]
  - Freezing phenomenon [Not Recovered/Not Resolved]
  - Muscle rigidity [Recovered/Resolved]
  - Fall [Recovered/Resolved]
  - On and off phenomenon [Recovering/Resolving]
  - Gait disturbance [Unknown]
  - Drug effect incomplete [Unknown]
  - Mobility decreased [Recovering/Resolving]
  - Hiccups [Not Recovered/Not Resolved]
  - On and off phenomenon [Recovered/Resolved]

NARRATIVE: CASE EVENT DATE: 2018
